FAERS Safety Report 15357485 (Version 2)
Quarter: 2019Q2

REPORT INFORMATION
  Report Type: Spontaneous
  Country: CA (occurrence: CA)
  Receive Date: 20180906
  Receipt Date: 20190628
  Transmission Date: 20190711
  Serious: Yes (Other)
  Sender: FDA-Public Use
  Company Number: CA-MYLANLABS-2018M1065584

PATIENT
  Age: 20 Month
  Sex: Female

DRUGS (5)
  1. DIGOXIN. [Concomitant]
     Active Substance: DIGOXIN
     Indication: NODAL ARRHYTHMIA
     Dosage: UNK
     Route: 065
  2. PROPRANOLOL [Suspect]
     Active Substance: PROPRANOLOL HYDROCHLORIDE
     Dosage: 5 MG/KG, QD, AT THE AGE OF 3 YEAR 11 MONTHS, DRUG WAS DISCONTINUED LATER
     Route: 065
  3. PROPRANOLOL [Suspect]
     Active Substance: PROPRANOLOL HYDROCHLORIDE
     Dosage: 7.5MG/KG,QD,AT THE AGE BETWEEN 3 YEAR 5 MONTHS TO 3 YEAR 11 MONTHS, DOSAGE WAS REDUCED FURTHER LATER
     Route: 065
  4. AMIODARONE [Concomitant]
     Active Substance: AMIODARONE
     Indication: NODAL ARRHYTHMIA
     Dosage: UNK
     Route: 065
  5. PROPRANOLOL [Suspect]
     Active Substance: PROPRANOLOL HYDROCHLORIDE
     Indication: NODAL ARRHYTHMIA
     Dosage: 10 MG/KG, QD, THE DOSE WAS REDUCED LATER
     Route: 065

REACTIONS (3)
  - Hypoglycaemic seizure [Unknown]
  - Urine ketone body present [Unknown]
  - Hypoglycaemia [Recovered/Resolved]
